FAERS Safety Report 14417601 (Version 3)
Quarter: 2018Q1

REPORT INFORMATION
  Report Type: Spontaneous
  Country: DE (occurrence: DE)
  Receive Date: 20180122
  Receipt Date: 20180307
  Transmission Date: 20180509
  Serious: Yes (Other)
  Sender: FDA-Public Use
  Company Number: DE-NOVOPROD-581088

PATIENT
  Age: 12 Year
  Sex: Female

DRUGS (4)
  1. NOVORAPID [Suspect]
     Active Substance: INSULIN ASPART
     Indication: TYPE 1 DIABETES MELLITUS
     Dosage: 40 U
     Route: 058
  2. NOVORAPID [Suspect]
     Active Substance: INSULIN ASPART
     Dosage: 40 U
     Route: 058
     Dates: start: 20180110
  3. NOVORAPID [Suspect]
     Active Substance: INSULIN ASPART
     Dosage: 40 U
     Route: 058
     Dates: start: 20180111
  4. NOVORAPID [Suspect]
     Active Substance: INSULIN ASPART
     Dosage: 40 U
     Route: 058
     Dates: start: 20180109

REACTIONS (7)
  - Blood glucose increased [Recovered/Resolved]
  - Product physical issue [Unknown]
  - Wrong technique in product usage process [Unknown]
  - Ketosis [Recovered/Resolved]
  - Product leakage [Unknown]
  - Blood glucose increased [Recovered/Resolved]
  - Product leakage [Unknown]

NARRATIVE: CASE EVENT DATE: 20180109
